FAERS Safety Report 14765863 (Version 1)
Quarter: 2018Q2

REPORT INFORMATION
  Report Type: Spontaneous
  Country: US (occurrence: US)
  Receive Date: 20180416
  Receipt Date: 20180416
  Transmission Date: 20180711
  Serious: No
  Sender: FDA-Public Use
  Company Number: US-MYLANLABS-2018M1020113

PATIENT
  Sex: Female
  Weight: 48 kg

DRUGS (3)
  1. ESTRADIOL. [Suspect]
     Active Substance: ESTRADIOL
     Dosage: 0.075 MG, QD
     Route: 062
  2. ESTRADIOL. [Suspect]
     Active Substance: ESTRADIOL
     Indication: MENOPAUSAL SYMPTOMS
     Dosage: 0.050 MG, QD
     Route: 062
     Dates: start: 201712, end: 201802
  3. PROGESTERONE. [Concomitant]
     Active Substance: PROGESTERONE
     Indication: PRODUCT USED FOR UNKNOWN INDICATION
     Dosage: 100 MG, ONE AT NIGHT
     Route: 065

REACTIONS (4)
  - Hot flush [Recovered/Resolved]
  - Night sweats [Recovered/Resolved]
  - Migraine [Not Recovered/Not Resolved]
  - Drug effect decreased [Recovered/Resolved]
